FAERS Safety Report 4501789-3 (Version None)
Quarter: 2004Q3

REPORT INFORMATION
  Report Type: 
  Country: None (occurrence: None)
  Receive Date: 20040928
  Receipt Date: 20040806
  Transmission Date: 20050211
  Serious: No
  Sender: FDA-Public Use
  Company Number: 04P-163-0262106-00

PATIENT
  Age: 64 Year
  Sex: Female
  Weight: 69.4003 kg

DRUGS (13)
  1. HUMIRA [Suspect]
     Indication: RHEUMATOID ARTHRITIS
     Dosage: 40 MG, 1 IN 2 WK, INJECTION
     Dates: start: 20040201, end: 20040501
  2. PREDNISONE [Concomitant]
  3. CONJUGATED ESTROGEN [Concomitant]
  4. ATENOLOL [Concomitant]
  5. FOLIC ACID [Concomitant]
  6. METHOTREXATE [Concomitant]
  7. HYDROCHLOROTHIAZIDE [Concomitant]
  8. ATORVASTATIN [Concomitant]
  9. AMITRIPTYLINE [Concomitant]
  10. ENALAPRIL MALEATE (ENALAPRIL) [Concomitant]
  11. CHLORDIAZEPOXIDE HCL [Concomitant]
  12. PROPACET 100 [Concomitant]
  13. ACETYLSALICYLIC ACID [Concomitant]

REACTIONS (1)
  - BLISTER [None]
